FAERS Safety Report 17593019 (Version 4)
Quarter: 2020Q2

REPORT INFORMATION
  Report Type: Report from Study
  Country: IN (occurrence: IN)
  Receive Date: 20200327
  Receipt Date: 20200618
  Transmission Date: 20200713
  Serious: Yes (Hospitalization)
  Sender: FDA-Public Use
  Company Number: NVSC2020IN078869

PATIENT
  Age: 55 Year
  Sex: Male
  Weight: 54.6 kg

DRUGS (17)
  1. BLINDED ACZ885 [Suspect]
     Active Substance: CANAKINUMAB
     Indication: NON-SMALL CELL LUNG CANCER
     Dosage: UNK
     Route: 042
     Dates: start: 20191209
  2. DROTIN [Concomitant]
     Indication: VOMITING
     Dosage: UNK
     Route: 065
     Dates: start: 20200315
  3. UDILIV [Concomitant]
     Active Substance: URSODIOL
     Indication: VOMITING
     Dosage: UNK
     Route: 065
     Dates: start: 20200315
  4. ZOFER [Concomitant]
     Active Substance: ONDANSETRON HYDROCHLORIDE
     Indication: VOMITING
     Dosage: UNK
     Route: 065
     Dates: start: 20200315
  5. BLINDED NO TREATMENT RECEIVED [Suspect]
     Active Substance: INVESTIGATIONAL PRODUCT
     Indication: NON-SMALL CELL LUNG CANCER
     Dosage: UNK
     Route: 042
     Dates: start: 20191209
  6. CIPLOX TZ [Concomitant]
     Indication: DIARRHOEA
     Dosage: UNK
     Route: 065
     Dates: start: 20200310
  7. HYOSCINE BUTYLBROMIDE [Concomitant]
     Active Substance: BUTYLSCOPOLAMINE BROMIDE
     Indication: VOMITING
     Dosage: UNK
     Route: 065
     Dates: start: 20200310
  8. COMPARATOR CARBOPLATIN [Suspect]
     Active Substance: CARBOPLATIN
     Indication: NON-SMALL CELL LUNG CANCER
     Dosage: UNK
     Route: 042
     Dates: start: 20191209
  9. TAZAR [Concomitant]
     Indication: VOMITING
     Dosage: UNK
     Route: 065
     Dates: start: 20200315
  10. BLINDED PEMETREXED [Suspect]
     Active Substance: PEMETREXED
     Indication: NON-SMALL CELL LUNG CANCER
     Dosage: UNK
     Route: 042
     Dates: start: 20191209
  11. TRANEXAMIC ACID. [Concomitant]
     Active Substance: TRANEXAMIC ACID
     Indication: HAEMORRHAGE
     Dosage: UNK
     Route: 065
     Dates: start: 20200310
  12. CANAKINUMAB. [Suspect]
     Active Substance: CANAKINUMAB
     Indication: NON-SMALL CELL LUNG CANCER
     Dosage: CODE NOT BROKEN
     Route: 058
     Dates: start: 20191209
  13. PLACEBO [Suspect]
     Active Substance: UNSPECIFIED INGREDIENT
     Indication: NON-SMALL CELL LUNG CANCER
     Dosage: UNK
     Route: 042
     Dates: start: 20191209
  14. PANTOPRAZOLE [Concomitant]
     Active Substance: PANTOPRAZOLE
     Indication: VOMITING
     Dosage: UNK
     Route: 065
     Dates: start: 20200315
  15. BLINDED CARBOPLATIN [Suspect]
     Active Substance: CARBOPLATIN
     Indication: NON-SMALL CELL LUNG CANCER
     Dosage: UNK
     Route: 042
     Dates: start: 20191209
  16. BLINDED PEMBROLIZUMAB [Suspect]
     Active Substance: PEMBROLIZUMAB
     Indication: NON-SMALL CELL LUNG CANCER
     Dosage: UNK
     Route: 042
     Dates: start: 20191209
  17. PEMBROLIZUMAB. [Suspect]
     Active Substance: PEMBROLIZUMAB
     Indication: NON-SMALL CELL LUNG CANCER
     Dosage: UNK
     Route: 042
     Dates: start: 20191209

REACTIONS (1)
  - Haematochezia [Recovered/Resolved]

NARRATIVE: CASE EVENT DATE: 20200315
